FAERS Safety Report 9913232 (Version 1)
Quarter: 2014Q1

REPORT INFORMATION
  Report Type: Spontaneous
  Country: US (occurrence: US)
  Receive Date: 20140220
  Receipt Date: 20140220
  Transmission Date: 20141002
  Serious: No
  Sender: FDA-Public Use
  Company Number: US-BAYER-2014-026674

PATIENT
  Age: 81 Year
  Sex: Female
  Weight: 86 kg

DRUGS (8)
  1. ALEVE CAPLET [Suspect]
     Indication: MYALGIA
     Dosage: 2 DF, PRN
     Route: 048
     Dates: start: 20140218
  2. HYDROCHLOROTHIAZIDE [Concomitant]
  3. LIVALO [Concomitant]
  4. CENTRUM SILVER [Concomitant]
  5. BIOTIN [Concomitant]
  6. FISH OIL [Concomitant]
  7. VITAMIN D [Concomitant]
  8. BAYER ASPIRIN REGIMEN ADULT LOW STRENGTH [Concomitant]

REACTIONS (1)
  - Drug ineffective [None]
